FAERS Safety Report 9850217 (Version 1)
Quarter: 2013Q4

REPORT INFORMATION
  Report Type: Spontaneous
  Country: US (occurrence: None)
  Receive Date: 20131226
  Receipt Date: 20131226
  Transmission Date: 20140711
  Serious: Yes (Hospitalization)
  Sender: FDA-Public Use
  Company Number: PHEH2012US021442

PATIENT
  Age: 82 Year
  Sex: Female

DRUGS (5)
  1. DIOVAN (VALSARTAN) [Suspect]
  2. LOSARTAN POTASSIUM [Suspect]
  3. TOPROL (METOPROLOL SUCCINATE) [Concomitant]
  4. VITAMIN D (ERGOCALCIFEROL) [Concomitant]
  5. ALIGN (BIFIDOBACTERIUM INFANTIS) [Concomitant]

REACTIONS (1)
  - Blood pressure increased [None]
